FAERS Safety Report 4332623-2 (Version None)
Quarter: 2004Q1

REPORT INFORMATION
  Report Type: 
  Country: None (occurrence: None)
  Receive Date: 20040330
  Receipt Date: 20040312
  Transmission Date: 20041129
  Serious: Yes (Hospitalization)
  Sender: FDA-Public Use
  Company Number: 2004-06796

PATIENT
  Age: 34 Year
  Sex: Male

DRUGS (11)
  1. VIREAD [Suspect]
     Indication: HIV INFECTION
     Dates: start: 20021017, end: 20030612
  2. VIDEX [Suspect]
     Dosage: 400 MG QD PO; 250 MG QD PO
     Route: 048
     Dates: start: 20021017, end: 20030331
  3. KALETRA [Concomitant]
  4. CRIXIVAN [Concomitant]
  5. NORVIR [Concomitant]
  6. HALDOL DECANOATE 100 [Concomitant]
  7. TERCIAN [Concomitant]
  8. DEROXAT [Concomitant]
  9. GARDENALE [Concomitant]
  10. TEGRETOL [Concomitant]
  11. SERESTA [Concomitant]

REACTIONS (5)
  - BLOOD PRESSURE INCREASED [None]
  - DRUG INEFFECTIVE [None]
  - JOINT EFFUSION [None]
  - OEDEMA PERIPHERAL [None]
  - RENAL FAILURE ACUTE [None]
